FAERS Safety Report 5355440-3 (Version None)
Quarter: 2007Q2

REPORT INFORMATION
  Report Type: 
  Country: None (occurrence: None)
  Receive Date: 20070611
  Receipt Date: 20070611
  Transmission Date: 20071010
  Serious: Yes (Hospitalization)
  Sender: FDA-Public Use
  Company Number: None

PATIENT
  Age: 62 Year
  Sex: Male
  Weight: 63.5036 kg

DRUGS (1)
  1. ERBITUX [Suspect]
     Dosage: 250 MG/M2 WKLY IV
     Route: 042
     Dates: end: 20070605

REACTIONS (8)
  - ABDOMINAL PAIN [None]
  - DIZZINESS [None]
  - HAEMATOCHEZIA [None]
  - HAEMOGLOBIN DECREASED [None]
  - HAEMORRHAGE [None]
  - HYPOTENSION [None]
  - PAIN [None]
  - VOMITING [None]
